FAERS Safety Report 14016540 (Version 3)
Quarter: 2018Q3

REPORT INFORMATION
  Report Type: Report from Study
  Country: US (occurrence: US)
  Receive Date: 20170927
  Receipt Date: 20180924
  Transmission Date: 20181010
  Serious: No
  Sender: FDA-Public Use
  Company Number: US-SA-2017SA154633

PATIENT
  Age: 58 Year
  Sex: Female

DRUGS (3)
  1. ALEMTUZUMAB [Suspect]
     Active Substance: ALEMTUZUMAB
     Indication: MULTIPLE SCLEROSIS
     Dosage: 12 MG, QD
     Route: 041
     Dates: start: 20170515, end: 20170519
  2. ALEMTUZUMAB [Suspect]
     Active Substance: ALEMTUZUMAB
     Dosage: 12 UNK
     Route: 041
  3. BACTRIM DS [Concomitant]
     Active Substance: SULFAMETHOXAZOLE\TRIMETHOPRIM
     Dosage: UNK UNK,QD

REACTIONS (9)
  - Peripheral swelling [Not Recovered/Not Resolved]
  - Wound haemorrhage [Recovered/Resolved]
  - Animal bite [Not Recovered/Not Resolved]
  - Feeling hot [Not Recovered/Not Resolved]
  - CD4 lymphocytes abnormal [Not Recovered/Not Resolved]
  - Pain in extremity [Not Recovered/Not Resolved]
  - Vomiting [Not Recovered/Not Resolved]
  - Erythema [Not Recovered/Not Resolved]
  - Product use issue [Unknown]

NARRATIVE: CASE EVENT DATE: 201705
